FAERS Safety Report 5314041-3 (Version None)
Quarter: 2007Q2

REPORT INFORMATION
  Report Type: 
  Country: None (occurrence: None)
  Receive Date: 20070501
  Receipt Date: 20070416
  Transmission Date: 20071010
  Serious: Yes (Hospitalization)
  Sender: FDA-Public Use
  Company Number: US-SHR-US-2007-013243

PATIENT
  Sex: Female

DRUGS (1)
  1. BETASERON [Suspect]
     Indication: SECONDARY PROGRESSIVE MULTIPLE SCLEROSIS
     Dosage: 8 MIU, EVERY 2D, BED TIME
     Route: 058
     Dates: start: 19940414

REACTIONS (1)
  - BLOOD COUNT ABNORMAL [None]
